FAERS Safety Report 6896948-9 (Version None)
Quarter: 2010Q3

REPORT INFORMATION
  Report Type: 
  Country: None (occurrence: None)
  Receive Date: 20100802
  Receipt Date: 20070307
  Transmission Date: 20110219
  Serious: No
  Sender: FDA-Public Use
  Company Number: US-PFIZER INC-2007020367

PATIENT
  Age: 33 Year
  Sex: Female

DRUGS (4)
  1. LYRICA [Suspect]
     Dates: start: 20070201
  2. NEURONTIN [Concomitant]
  3. ORAL CONTRACEPTIVE NOS [Concomitant]
  4. ANTIDEPRESSANTS [Concomitant]

REACTIONS (2)
  - FATIGUE [None]
  - SOMNOLENCE [None]
